FAERS Safety Report 20084942 (Version 2)
Quarter: 2022Q1

REPORT INFORMATION
  Report Type: Report from Study
  Country: US (occurrence: US)
  Receive Date: 20211118
  Receipt Date: 20220216
  Transmission Date: 20220424
  Serious: Yes (Death, Hospitalization)
  Sender: FDA-Public Use
  Company Number: US-NOVARTISPH-NVSC2021US263941

PATIENT
  Age: 75 Year
  Sex: Female

DRUGS (1)
  1. TABRECTA [Suspect]
     Active Substance: CAPMATINIB
     Indication: Lung neoplasm malignant
     Dosage: 400 MG, BID
     Route: 048
     Dates: start: 20210915, end: 20211113

REACTIONS (3)
  - Septic shock [Fatal]
  - Systemic inflammatory response syndrome [Fatal]
  - Hypotension [Unknown]

NARRATIVE: CASE EVENT DATE: 20211113
